FAERS Safety Report 7104624-2 (Version None)
Quarter: 2010Q4

REPORT INFORMATION
  Report Type: 
  Country: None (occurrence: None)
  Receive Date: 20101116
  Receipt Date: 20100330
  Transmission Date: 20110411
  Serious: Yes (Other)
  Sender: FDA-Public Use
  Company Number: US-ASTRAZENECA-2006UW13634

PATIENT
  Sex: Female
  Weight: 111.6 kg

DRUGS (16)
  1. SEROQUEL [Suspect]
     Indication: ANXIETY
     Dosage: 25-50 MG
     Route: 048
     Dates: start: 20001016
  2. SEROQUEL [Suspect]
     Route: 048
     Dates: start: 20020101
  3. ZYPREXA [Suspect]
     Dates: start: 20020101, end: 20050101
  4. NAVANE [Concomitant]
     Dates: start: 19890101, end: 19920101
  5. RISPERDAL [Concomitant]
     Dates: start: 20000101, end: 20050101
  6. PROZAC [Concomitant]
     Dosage: 40 MG 1 AM
     Dates: start: 20000601
  7. PAXIL [Concomitant]
     Dosage: 20 MG BID
     Route: 048
     Dates: start: 20060101
  8. WELLBUTRIN [Concomitant]
  9. ZOLOFT [Concomitant]
  10. ATIVAN [Concomitant]
     Dosage: 0.5 BID
     Route: 048
     Dates: start: 20060101
  11. TRAZODONE [Concomitant]
     Dosage: 50 MG QHS
     Route: 048
     Dates: start: 20060101
  12. REMERON [Concomitant]
     Dosage: 25 MG QHS
     Dates: start: 20060101
  13. ELAVIL [Concomitant]
     Dosage: 100-150 MG 1 HS
     Dates: start: 20000601
  14. NEURONTIN [Concomitant]
     Dosage: 100-1800 MG
     Route: 048
     Dates: start: 20000601
  15. ABILIFY [Concomitant]
     Dates: end: 20060101
  16. PRILOSEC [Concomitant]
     Dates: start: 20041108

REACTIONS (7)
  - ARTHRITIS [None]
  - BLOOD TRIGLYCERIDES INCREASED [None]
  - CARDIAC DISORDER [None]
  - FIBROMYALGIA [None]
  - JOINT INJURY [None]
  - MYOCARDIAL INFARCTION [None]
  - TYPE 2 DIABETES MELLITUS [None]
